FAERS Safety Report 6351043-2 (Version None)
Quarter: 2009Q3

REPORT INFORMATION
  Report Type: 
  Country: None (occurrence: None)
  Receive Date: 20090912
  Receipt Date: 20090622
  Transmission Date: 20100115
  Serious: No
  Sender: FDA-Public Use
  Company Number: US-ABBOTT-07P-163-0374029-00

PATIENT
  Sex: Female
  Weight: 41.768 kg

DRUGS (3)
  1. HUMIRA [Suspect]
     Indication: CROHN'S DISEASE
     Route: 058
     Dates: start: 20070625, end: 20070625
  2. HUMIRA [Suspect]
     Route: 058
     Dates: start: 20070706
  3. CILEST [Concomitant]
     Indication: CONTRACEPTION
     Route: 048

REACTIONS (1)
  - INCORRECT DOSE ADMINISTERED [None]
